FAERS Safety Report 13383771 (Version 1)
Quarter: 2017Q1

REPORT INFORMATION
  Report Type: Spontaneous
  Country: US (occurrence: US)
  Receive Date: 20170329
  Receipt Date: 20170329
  Transmission Date: 20170429
  Serious: No
  Sender: FDA-Public Use
  Company Number: US-BAYER-2017-058372

PATIENT
  Age: 55 Year
  Sex: Female
  Weight: 57.15 kg

DRUGS (1)
  1. CLIMARA PRO [Suspect]
     Active Substance: ESTRADIOL\LEVONORGESTREL
     Indication: MENOPAUSAL DISORDER
     Route: 062
     Dates: start: 201505, end: 20170324

REACTIONS (1)
  - Application site rash [Not Recovered/Not Resolved]
